FAERS Safety Report 25741936 (Version 1)
Quarter: 2025Q3

REPORT INFORMATION
  Report Type: Spontaneous
  Country: US (occurrence: US)
  Receive Date: 20250829
  Receipt Date: 20250829
  Transmission Date: 20251020
  Serious: Yes (Other)
  Sender: AMGEN
  Company Number: US-AMGEN-USASP2025167914

PATIENT
  Age: 55 Year
  Sex: Male

DRUGS (6)
  1. PREDNISONE [Suspect]
     Active Substance: PREDNISONE
     Indication: Hormone-dependent prostate cancer
     Route: 065
  2. PREDNISONE [Suspect]
     Active Substance: PREDNISONE
     Route: 065
  3. LEUPROLIDE [Concomitant]
     Active Substance: LEUPROLIDE
  4. APALUTAMIDE [Concomitant]
     Active Substance: APALUTAMIDE
  5. ABIRATERONE [Concomitant]
     Active Substance: ABIRATERONE
  6. ABIRATERONE [Concomitant]
     Active Substance: ABIRATERONE

REACTIONS (2)
  - Hormone-dependent prostate cancer [Unknown]
  - Off label use [Unknown]
